FAERS Safety Report 7902557-2 (Version None)
Quarter: 2011Q4

REPORT INFORMATION
  Report Type: 
  Country: None (occurrence: None)
  Receive Date: 20111108
  Receipt Date: 20111102
  Transmission Date: 20120403
  Serious: No
  Sender: FDA-Public Use
  Company Number: US-B.I. PHARMACEUTICALS,INC./RIDGEFIELD-2011-BP-23650BP

PATIENT
  Age: 70 Year
  Sex: Female

DRUGS (11)
  1. LOVASTATIN [Concomitant]
  2. HYDROCHLOROTHIAZIDE [Concomitant]
     Indication: HYPERTENSION
     Route: 048
  3. VITAMIN TAB [Concomitant]
     Indication: VITAMIN SUPPLEMENTATION
     Route: 048
  4. OXYGEN [Concomitant]
  5. SPIRIVA [Suspect]
     Indication: CHRONIC OBSTRUCTIVE PULMONARY DISEASE
     Dosage: 18 MCG
     Route: 055
     Dates: start: 20110920
  6. LEVOXYL [Concomitant]
     Indication: HYPERTENSION
     Route: 048
  7. HYDROCODONE BITARTRATE [Concomitant]
  8. CARISOPRADAL [Concomitant]
  9. ALPRAZOLEM [Concomitant]
  10. PROAIR HFA [Concomitant]
     Indication: CHRONIC OBSTRUCTIVE PULMONARY DISEASE
     Route: 055
  11. OXYBUTINAN [Concomitant]

REACTIONS (1)
  - DRUG INEFFECTIVE [None]
